FAERS Safety Report 12325575 (Version 3)
Quarter: 2020Q1

REPORT INFORMATION
  Report Type: Spontaneous
  Country: GB (occurrence: GB)
  Receive Date: 20160503
  Receipt Date: 20200227
  Transmission Date: 20200409
  Serious: Yes (Disabling, Other)
  Sender: FDA-Public Use
  Company Number: GB-ALLERGAN-1655046US

PATIENT
  Sex: Male

DRUGS (4)
  1. TAMSULOSIN [Concomitant]
     Active Substance: TAMSULOSIN
  2. ACULAR [Suspect]
     Active Substance: KETOROLAC TROMETHAMINE
     Indication: POSTOPERATIVE CARE
     Dosage: 1 GTT, TID
     Route: 047
  3. SIMVASTATIN. [Concomitant]
     Active Substance: SIMVASTATIN
  4. MAXITROL [Interacting]
     Active Substance: DEXAMETHASONE\NEOMYCIN SULFATE\POLYMYXIN B SULFATE
     Indication: POSTOPERATIVE CARE
     Dosage: 1 GTT, QID
     Route: 047

REACTIONS (5)
  - Keratopathy [Not Recovered/Not Resolved]
  - Drug interaction [Unknown]
  - Punctate keratitis [Unknown]
  - Eye irritation [Unknown]
  - Retinal pigment epitheliopathy [Unknown]
